FAERS Safety Report 5826106-8 (Version None)
Quarter: 2008Q3

REPORT INFORMATION
  Report Type: 
  Country: None (occurrence: None)
  Receive Date: 20080729
  Receipt Date: 20080717
  Transmission Date: 20090109
  Serious: Yes (Hospitalization, Other)
  Sender: FDA-Public Use
  Company Number: DE-ELI_LILLY_AND_COMPANY-DE200807003816

PATIENT
  Sex: Male

DRUGS (8)
  1. CYMBALTA [Suspect]
     Indication: MAJOR DEPRESSION
     Dosage: 60 MG, DAILY (1/D)
     Route: 048
     Dates: start: 20080101, end: 20080101
  2. TREVILOR [Concomitant]
     Indication: SOMATISATION DISORDER
     Dosage: UNK, UNKNOWN
     Route: 048
     Dates: end: 20080101
  3. DILATREND [Concomitant]
     Dosage: UNK, UNKNOWN
     Route: 065
  4. ADALAT SL - SLOW RELEASE [Concomitant]
     Dosage: UNK, UNKNOWN
     Route: 065
  5. CARVEDILOL [Concomitant]
     Dosage: UNK, UNKNOWN
     Route: 065
  6. DIOVAN [Concomitant]
     Dosage: UNK, UNKNOWN
     Route: 065
  7. PLAVIX [Concomitant]
     Dosage: UNK, UNKNOWN
     Route: 065
  8. RAMIPRIL [Concomitant]
     Dosage: UNK, UNKNOWN
     Route: 065

REACTIONS (3)
  - CONFUSIONAL STATE [None]
  - DRUG INTERACTION [None]
  - HYPOKALAEMIA [None]
